FAERS Safety Report 24209167 (Version 3)
Quarter: 2024Q4

REPORT INFORMATION
  Report Type: Spontaneous
  Country: JP (occurrence: JP)
  Receive Date: 20240814
  Receipt Date: 20241219
  Transmission Date: 20250114
  Serious: Yes (Death, Other)
  Sender: PFIZER
  Company Number: JP-PFIZER INC-PV202400103809

PATIENT
  Age: 84 Year
  Sex: Female
  Weight: 52 kg

DRUGS (15)
  1. ELREXFIO [Suspect]
     Active Substance: ELRANATAMAB-BCMM
     Indication: Plasma cell myeloma
     Dosage: 12 MG, SINGLE
     Route: 058
     Dates: start: 20240624, end: 20240624
  2. ELREXFIO [Suspect]
     Active Substance: ELRANATAMAB-BCMM
     Dosage: 32 MG, SINGLE
     Route: 058
     Dates: start: 20240627, end: 20240627
  3. ELREXFIO [Suspect]
     Active Substance: ELRANATAMAB-BCMM
     Dosage: 76 MG, SINGLE
     Route: 058
     Dates: start: 20240701, end: 20240701
  4. ELREXFIO [Suspect]
     Active Substance: ELRANATAMAB-BCMM
     Dosage: 76 MG, SINGLE
     Route: 058
     Dates: start: 20240708, end: 20240708
  5. METHYLCOBALAMIN [Concomitant]
     Active Substance: METHYLCOBALAMIN
     Indication: Neuropathy peripheral
     Dosage: 500 UG, 2X/DAY
  6. EDOXABAN TOSYLATE [Concomitant]
     Active Substance: EDOXABAN TOSYLATE
     Indication: Deep vein thrombosis
     Dosage: 15 MG, 1X/DAY
  7. EZETIMIBE [Concomitant]
     Active Substance: EZETIMIBE
     Indication: Hyperlipidaemia
     Dosage: 10 MG, 1X/DAY
  8. ZINC [Concomitant]
     Active Substance: ZINC
     Indication: Taste disorder
     Dosage: 100 MG, 1X/DAY
  9. ACETAMINOPHEN\TRAMADOL HYDROCHLORIDE [Concomitant]
     Active Substance: ACETAMINOPHEN\TRAMADOL HYDROCHLORIDE
     Indication: Back pain
     Dosage: 1 DF, 2X/DAY
  10. ESOMEPRAZOLE [Concomitant]
     Active Substance: ESOMEPRAZOLE
     Indication: Gastrooesophageal reflux disease
     Dosage: 20 MG, 1X/DAY
  11. AMITIZA [Concomitant]
     Active Substance: LUBIPROSTONE
     Indication: Constipation
     Dosage: 12 MG, 2X/DAY
  12. AMBROXOL [Concomitant]
     Active Substance: AMBROXOL
     Indication: Bronchitis chronic
     Dosage: 45 MG, 1X/DAY
  13. SULFAMETHOXAZOLE\TRIMETHOPRIM [Concomitant]
     Active Substance: SULFAMETHOXAZOLE\TRIMETHOPRIM
     Indication: Infection prophylaxis
     Dosage: 1 DF MONDAY, WEDNESDAY AND FRIDAY
  14. ALENDRONATE [Concomitant]
     Active Substance: ALENDRONATE SODIUM
     Indication: Osteoporosis
     Dosage: 35 MG EVERY TUESDAY
  15. BEZAFIBRATE [Concomitant]
     Active Substance: BEZAFIBRATE
     Indication: Hyperlipidaemia
     Dosage: 200 MG, 2X/DAY

REACTIONS (6)
  - Septic shock [Fatal]
  - Coronavirus infection [Fatal]
  - Pneumonia [Unknown]
  - Pneumonia cytomegaloviral [Unknown]
  - Decreased appetite [Unknown]
  - Pyrexia [Unknown]

NARRATIVE: CASE EVENT DATE: 20240716
